FAERS Safety Report 8294126-2 (Version None)
Quarter: 2012Q2

REPORT INFORMATION
  Report Type: 
  Country: None (occurrence: None)
  Receive Date: 20120418
  Receipt Date: 20120410
  Transmission Date: 20120825
  Serious: Yes (Death, Hospitalization)
  Sender: FDA-Public Use
  Company Number: PHEH2012US000979

PATIENT
  Sex: Male
  Weight: 111 kg

DRUGS (15)
  1. ZOLOFT [Concomitant]
     Dosage: 180 MG, QD
     Route: 048
  2. BACTRIM [Concomitant]
     Dosage: 400 MG,DAILY
     Route: 048
  3. LASIX [Concomitant]
     Dosage: 20 MG, DAILY
  4. DIOVAN [Concomitant]
     Dosage: 320 MG, QD
  5. LIPITOR [Concomitant]
     Dosage: 40 MG, QD
     Route: 048
  6. SORIATANE [Concomitant]
     Dosage: 25 MG, PRN
  7. COUMADIN [Concomitant]
     Dosage: 3 MG, DAILY
     Route: 048
  8. CARDIZEM CD [Concomitant]
     Dosage: 240 MG, DAILY
     Route: 048
  9. SINEQUAN [Concomitant]
     Dosage: 100 MG, DAILY
  10. TRICOR [Concomitant]
     Dosage: 145 MG,DAILY
  11. AMIODARONE HCL [Concomitant]
     Indication: ATRIAL FIBRILLATION
     Dosage: 200 MG, Q12H
     Route: 048
  12. ANTIARRHYTHMICS, CLASS I AND III [Concomitant]
  13. MYFORTIC [Suspect]
     Indication: HEART TRANSPLANT
     Dosage: 180 MG, BID
     Route: 048
     Dates: start: 20020811
  14. PROGRAF [Concomitant]
     Dosage: 1.5 G, Q12H
     Route: 048
  15. PRILOSEC [Concomitant]
     Dosage: 40 MG, QD

REACTIONS (4)
  - RESPIRATORY FAILURE [None]
  - MULTI-ORGAN FAILURE [None]
  - LUNG INFILTRATION [None]
  - ACUTE RESPIRATORY DISTRESS SYNDROME [None]
